FAERS Safety Report 5077651-7 (Version None)
Quarter: 2006Q3

REPORT INFORMATION
  Report Type: 
  Country: None (occurrence: None)
  Receive Date: 20060810
  Receipt Date: 20060101
  Transmission Date: 20061208
  Serious: Yes (Other)
  Sender: FDA-Public Use
  Company Number: 2006AC01443

PATIENT
  Age: 53 Year
  Sex: Male
  Weight: 110 kg

DRUGS (3)
  1. BUPIVACAINE [Suspect]
     Indication: ANAESTHESIA
     Route: 053
  2. LIDOCAINE [Suspect]
     Indication: ANAESTHESIA
     Dosage: WITHOUT EPINEPHRINE
     Route: 053
  3. MIDAZOLAM HYDROCHLORIDE [Concomitant]
     Indication: SEDATION
     Route: 042

REACTIONS (4)
  - ATELECTASIS [None]
  - DIAPHRAGMATIC PARALYSIS [None]
  - INSOMNIA [None]
  - RESPIRATORY DISORDER [None]
